FAERS Safety Report 20178861 (Version 1)
Quarter: 2021Q4

REPORT INFORMATION
  Report Type: Spontaneous
  Country: US (occurrence: US)
  Receive Date: 20211214
  Receipt Date: 20211214
  Transmission Date: 20220303
  Serious: No
  Sender: FDA-Public Use
  Company Number: US-BIOVITRUM-2021US10521

PATIENT
  Age: 1 Year
  Sex: Male

DRUGS (7)
  1. SYNAGIS [Suspect]
     Active Substance: PALIVIZUMAB
     Indication: Antiviral prophylaxis
     Route: 030
     Dates: start: 20201217
  2. SYNAGIS [Suspect]
     Active Substance: PALIVIZUMAB
     Dosage: 2 INJECTIONS 0.72 ML VIA IM TO LEFT THIGH AND 0.72 ML VIA IM TO RIGHT THIGH.
     Dates: start: 20211105
  3. SINGULAIR [Concomitant]
     Active Substance: MONTELUKAST SODIUM
  4. FLOVENT [Concomitant]
     Active Substance: FLUTICASONE PROPIONATE
  5. VITAMINS [Concomitant]
     Active Substance: VITAMINS
  6. ALBUTEROL [Concomitant]
     Active Substance: ALBUTEROL
  7. PEPCID [Concomitant]
     Active Substance: FAMOTIDINE

REACTIONS (1)
  - Heart rate decreased [Recovered/Resolved]

NARRATIVE: CASE EVENT DATE: 20211105
